FAERS Safety Report 21166985 (Version 4)
Quarter: 2022Q3

REPORT INFORMATION
  Report Type: Spontaneous
  Country: US (occurrence: US)
  Receive Date: 20220803
  Receipt Date: 20220902
  Transmission Date: 20221027
  Serious: No
  Sender: FDA-Public Use
  Company Number: US-BIOGEN-2022BI01105624

PATIENT
  Sex: Female

DRUGS (4)
  1. VUMERITY [Suspect]
     Active Substance: DIROXIMEL FUMARATE
     Indication: Multiple sclerosis
     Route: 050
  2. VUMERITY [Suspect]
     Active Substance: DIROXIMEL FUMARATE
     Route: 050
  3. VUMERITY [Suspect]
     Active Substance: DIROXIMEL FUMARATE
     Route: 050
     Dates: start: 20210722
  4. VUMERITY [Suspect]
     Active Substance: DIROXIMEL FUMARATE
     Route: 050
     Dates: start: 202108

REACTIONS (4)
  - Drug intolerance [Unknown]
  - Gastric disorder [Unknown]
  - Abdominal pain upper [Unknown]
  - Diarrhoea [Recovered/Resolved]
